FAERS Safety Report 6317904-5 (Version None)
Quarter: 2009Q3

REPORT INFORMATION
  Report Type: 
  Country: None (occurrence: None)
  Receive Date: 20090821
  Receipt Date: 20090812
  Transmission Date: 20100115
  Serious: Yes (Other)
  Sender: FDA-Public Use
  Company Number: US-JNJCH-2009021990

PATIENT
  Age: 25 Year
  Sex: Male
  Weight: 68 kg

DRUGS (1)
  1. SUDAFED OM SINUS COLD [Suspect]
     Indication: NASOPHARYNGITIS
     Dosage: TEXT:1 SPRAY ONCE
     Route: 045

REACTIONS (1)
  - ANOSMIA [None]
